FAERS Safety Report 24987634 (Version 3)
Quarter: 2025Q1

REPORT INFORMATION
  Report Type: Report from Study
  Country: CA (occurrence: CA)
  Receive Date: 20250219
  Receipt Date: 20250318
  Transmission Date: 20250409
  Serious: Yes (Hospitalization, Other)
  Sender: HLS THERAPEUTICS
  Company Number: CA-HLS-202500327

PATIENT
  Age: 68 Year
  Sex: Female

DRUGS (4)
  1. CLOZARIL [Suspect]
     Active Substance: CLOZAPINE
     Indication: Product used for unknown indication
     Route: 065
  2. CLOZARIL [Suspect]
     Active Substance: CLOZAPINE
     Indication: Product used for unknown indication
     Route: 048
     Dates: start: 20180531, end: 20250211
  3. Carbo Caelyx [Concomitant]
     Indication: Chemotherapy
     Route: 065
  4. AMOXICILLIN [Concomitant]
     Active Substance: AMOXICILLIN
     Indication: Product used for unknown indication
     Route: 048

REACTIONS (4)
  - Neutropenia [Recovered/Resolved]
  - Fall [Unknown]
  - Pancytopenia [Not Recovered/Not Resolved]
  - Leukopenia [Recovered/Resolved]

NARRATIVE: CASE EVENT DATE: 20250204
